FAERS Safety Report 5144048-0 (Version None)
Quarter: 2006Q4

REPORT INFORMATION
  Report Type: 
  Country: None (occurrence: None)
  Receive Date: 20061106
  Receipt Date: 20061020
  Transmission Date: 20070319
  Serious: Yes (Other)
  Sender: FDA-Public Use
  Company Number: IT-PURDUE-USA_2006_0025489

PATIENT
  Sex: Male

DRUGS (4)
  1. MORPHINE SULFATE [Suspect]
     Indication: PROCEDURAL PAIN
     Dosage: 30 MCG/KG, Q1H
     Route: 042
  2. MORPHINE SULFATE [Suspect]
     Dosage: 60 MCG/KG, Q1H
     Route: 042
  3. PHENOBARBITAL TAB [Concomitant]
     Dosage: 20 MG/KG, DAILY
  4. PHENOBARBITAL TAB [Concomitant]
     Dosage: 5 MG/KG, DAILY

REACTIONS (2)
  - DRUG WITHDRAWAL SYNDROME NEONATAL [None]
  - SEPTIC NECROSIS [None]
